FAERS Safety Report 8479943-8 (Version None)
Quarter: 2012Q2

REPORT INFORMATION
  Report Type: 
  Country: None (occurrence: None)
  Receive Date: 20120615
  Receipt Date: 20120531
  Transmission Date: 20120825
  Serious: Yes (Hospitalization)
  Sender: FDA-Public Use
  Company Number: ACO_30455_2012

PATIENT
  Age: 53 Year
  Sex: Male

DRUGS (9)
  1. NUVIGIL [Concomitant]
  2. SAW PALMETTO /00833501/ (SERENOA REPENS) [Concomitant]
  3. AMPYRA [Suspect]
     Indication: MULTIPLE SCLEROSIS
  4. TALWIN [Suspect]
     Indication: BACK PAIN
     Dates: start: 20120510
  5. TYSABRI [Concomitant]
  6. ADVIL /00044201/ (MEFENAMIC ACID) [Concomitant]
  7. EFFEXOR [Concomitant]
  8. CYCLOBENZAPRINE [Concomitant]
  9. DALFAMPRIDINE ER 10MG (DALFAMPRIDINE ER) TABLET [Suspect]
     Indication: MULTIPLE SCLEROSIS
     Dosage: BID
     Dates: start: 20120305, end: 20120412

REACTIONS (20)
  - COAGULOPATHY [None]
  - PAIN [None]
  - ENCEPHALOPATHY [None]
  - DYSURIA [None]
  - HAEMANGIOMA OF LIVER [None]
  - DRUG-INDUCED LIVER INJURY [None]
  - HEPATIC FUNCTION ABNORMAL [None]
  - HEADACHE [None]
  - DECREASED APPETITE [None]
  - MALAISE [None]
  - BACK PAIN [None]
  - BACTERIAL TEST POSITIVE [None]
  - WHITE BLOOD CELLS URINE POSITIVE [None]
  - JAUNDICE [None]
  - NITRITE URINE PRESENT [None]
  - TRANSAMINASES INCREASED [None]
  - DIARRHOEA [None]
  - COUGH [None]
  - PYREXIA [None]
  - CHROMATURIA [None]
